FAERS Safety Report 5119626-5 (Version None)
Quarter: 2006Q4

REPORT INFORMATION
  Report Type: 
  Country: None (occurrence: None)
  Receive Date: 20061003
  Receipt Date: 20060926
  Transmission Date: 20070319
  Serious: Yes (Disabling)
  Sender: FDA-Public Use
  Company Number: GB-GLAXOSMITHKLINE-B0439644A

PATIENT
  Age: 22 Year
  Sex: Male

DRUGS (2)
  1. KIVEXA [Suspect]
     Indication: HIV INFECTION
     Route: 048
     Dates: start: 20060401, end: 20060401
  2. KALETRA [Concomitant]
     Route: 065

REACTIONS (4)
  - JUVENILE ARTHRITIS [None]
  - PYREXIA [None]
  - RASH [None]
  - SYNOVITIS [None]
